FAERS Safety Report 21166133 (Version 1)
Quarter: 2022Q3

REPORT INFORMATION
  Report Type: Spontaneous
  Country: US (occurrence: None)
  Receive Date: 20220802
  Receipt Date: 20220802
  Transmission Date: 20221027
  Serious: Yes (Hospitalization)
  Sender: FDA-Public Use
  Company Number: None

PATIENT
  Age: 81 Year
  Sex: Female
  Weight: 48.3 kg

DRUGS (2)
  1. CARBAMAZEPINE [Suspect]
     Active Substance: CARBAMAZEPINE
     Indication: Essential tremor
     Dosage: FREQUENCY : TWICE A DAY;?
     Route: 048
     Dates: end: 20220729
  2. PAXLOVID [Suspect]
     Active Substance: NIRMATRELVIR\RITONAVIR

REACTIONS (6)
  - SARS-CoV-2 test positive [None]
  - Drug interaction [None]
  - Drug level increased [None]
  - Encephalitis toxic [None]
  - Neutropenia [None]
  - Liver function test increased [None]

NARRATIVE: CASE EVENT DATE: 20220729
